FAERS Safety Report 6770492-1 (Version None)
Quarter: 2010Q2

REPORT INFORMATION
  Report Type: 
  Country: None (occurrence: None)
  Receive Date: 20100615
  Receipt Date: 20100602
  Transmission Date: 20101027
  Serious: Yes (Death)
  Sender: FDA-Public Use
  Company Number: CO-ROCHE-700005

PATIENT
  Sex: Female

DRUGS (3)
  1. AVASTIN [Suspect]
     Indication: COLORECTAL CANCER
     Dosage: FORM: INFUSION.
     Route: 042
     Dates: start: 20090813, end: 20100210
  2. LOSARTAN POTASSIUM [Concomitant]
     Dosage: FREQUENCY: DAILY
     Route: 048
     Dates: end: 20100325
  3. HYDROCHLOROTHIAZIDE [Concomitant]
     Dosage: FREQUENCY: DAILY
     Route: 048
     Dates: end: 20100325

REACTIONS (2)
  - CARDIOPULMONARY FAILURE [None]
  - OEDEMA [None]
